FAERS Safety Report 20163290 (Version 2)
Quarter: 2022Q1

REPORT INFORMATION
  Report Type: Report from Study
  Country: NZ (occurrence: NZ)
  Receive Date: 20211209
  Receipt Date: 20220207
  Transmission Date: 20220423
  Serious: Yes (Hospitalization)
  Sender: FDA-Public Use
  Company Number: NZ-NOVARTISPH-NVSC2021NZ279693

PATIENT
  Age: 30 Year
  Sex: Female

DRUGS (2)
  1. COSENTYX [Suspect]
     Active Substance: SECUKINUMAB
     Indication: Psoriatic arthropathy
     Dosage: UNK
     Route: 065
     Dates: start: 20210702
  2. COSENTYX [Suspect]
     Active Substance: SECUKINUMAB
     Dosage: UNK (LAST DOSE PRIOR TO ONSET DATE OF EVENTS)
     Route: 065
     Dates: start: 20211029

REACTIONS (4)
  - Colitis [Unknown]
  - Abdominal pain [Unknown]
  - Diarrhoea [Unknown]
  - Dysphonia [Unknown]

NARRATIVE: CASE EVENT DATE: 20211201
